FAERS Safety Report 16793289 (Version 2)
Quarter: 2019Q3

REPORT INFORMATION
  Report Type: Spontaneous
  Country: ES (occurrence: ES)
  Receive Date: 20190911
  Receipt Date: 20190912
  Transmission Date: 20191005
  Serious: Yes (Other)
  Sender: FDA-Public Use
  Company Number: ES-JNJFOC-20190910262

PATIENT
  Age: 3 Month
  Sex: Male
  Weight: 6.9 kg

DRUGS (3)
  1. OMEPRAZOLE. [Suspect]
     Active Substance: OMEPRAZOLE
     Indication: INFANTILE SPITTING UP
     Dosage: ADDITIONAL INFORMATION ON DRUG: BATCH AND LOT TESTED AND FOUND NOT WITHIN SPECIFICATIONS; DURING ALL
     Route: 048
     Dates: start: 20190326, end: 20190502
  2. COLECALCIFEROL [Concomitant]
     Active Substance: CHOLECALCIFEROL
     Indication: PROPHYLAXIS
     Dosage: DOSAGE MAINTAINED
     Route: 048
     Dates: start: 20190213
  3. MINOXIDIL. [Suspect]
     Active Substance: MINOXIDIL
     Indication: PRODUCT USED FOR UNKNOWN INDICATION
     Route: 065
     Dates: start: 20190326, end: 20190502

REACTIONS (3)
  - Product formulation issue [Recovered/Resolved]
  - Skin hyperpigmentation [Unknown]
  - Hypertrichosis [Recovering/Resolving]

NARRATIVE: CASE EVENT DATE: 20190326
